FAERS Safety Report 14326792 (Version 2)
Quarter: 2018Q2

REPORT INFORMATION
  Report Type: Spontaneous
  Country: FR (occurrence: FR)
  Receive Date: 20171227
  Receipt Date: 20180424
  Transmission Date: 20180711
  Serious: Yes (Other)
  Sender: FDA-Public Use
  Company Number: FR-009507513-1712FRA012748

PATIENT
  Age: 37 Year
  Sex: Female
  Weight: 72 kg

DRUGS (4)
  1. ORGALUTRAN [Suspect]
     Active Substance: GANIRELIX ACETATE
     Dosage: 1 VIAL SC
     Route: 058
     Dates: start: 20171108, end: 20171119
  2. PROVAMES [Suspect]
     Active Substance: ESTRADIOL
     Dosage: 2 TABLETS, QD
     Route: 048
     Dates: start: 20171020, end: 20171101
  3. PUREGON (FOLLITROPIN BETA) [Suspect]
     Active Substance: FOLLITROPIN
     Dosage: 300 IU, UNK
     Route: 058
     Dates: start: 20171110, end: 20171119
  4. ELONVA [Suspect]
     Active Substance: CORIFOLLITROPIN ALFA
     Indication: IN VITRO FERTILISATION
     Dosage: UNK
     Dates: start: 20171103

REACTIONS (4)
  - Angioedema [Unknown]
  - Insomnia [Unknown]
  - Oral herpes [Unknown]
  - Pruritus generalised [Unknown]

NARRATIVE: CASE EVENT DATE: 20171111
